FAERS Safety Report 25273940 (Version 1)
Quarter: 2025Q2

REPORT INFORMATION
  Report Type: Report from Study
  Country: US (occurrence: US)
  Receive Date: 20250506
  Receipt Date: 20250506
  Transmission Date: 20250716
  Serious: Yes (Other)
  Sender: MYLAN
  Company Number: US-MYLANLABS-2025M1038310

PATIENT
  Sex: Female

DRUGS (16)
  1. DEXMEDETOMIDINE HYDROCHLORIDE [Suspect]
     Active Substance: DEXMEDETOMIDINE HYDROCHLORIDE
     Indication: Maintenance of anaesthesia
     Dosage: 0.6 MICROGRAM/KILOGRAM, QH
  2. DEXMEDETOMIDINE HYDROCHLORIDE [Suspect]
     Active Substance: DEXMEDETOMIDINE HYDROCHLORIDE
     Dosage: 0.6 MICROGRAM/KILOGRAM, QH
     Route: 042
  3. DEXMEDETOMIDINE HYDROCHLORIDE [Suspect]
     Active Substance: DEXMEDETOMIDINE HYDROCHLORIDE
     Dosage: 0.6 MICROGRAM/KILOGRAM, QH
     Route: 042
  4. DEXMEDETOMIDINE HYDROCHLORIDE [Suspect]
     Active Substance: DEXMEDETOMIDINE HYDROCHLORIDE
     Dosage: 0.6 MICROGRAM/KILOGRAM, QH
  5. MIDAZOLAM [Suspect]
     Active Substance: MIDAZOLAM
     Indication: Anaesthetic premedication
  6. MIDAZOLAM [Suspect]
     Active Substance: MIDAZOLAM
     Route: 065
  7. MIDAZOLAM [Suspect]
     Active Substance: MIDAZOLAM
     Route: 065
  8. MIDAZOLAM [Suspect]
     Active Substance: MIDAZOLAM
  9. MIDAZOLAM [Suspect]
     Active Substance: MIDAZOLAM
     Indication: Maintenance of anaesthesia
  10. MIDAZOLAM [Suspect]
     Active Substance: MIDAZOLAM
     Route: 042
  11. MIDAZOLAM [Suspect]
     Active Substance: MIDAZOLAM
     Route: 042
  12. MIDAZOLAM [Suspect]
     Active Substance: MIDAZOLAM
  13. PROPOFOL [Suspect]
     Active Substance: PROPOFOL
     Indication: Maintenance of anaesthesia
     Dosage: 75 MICROGRAM/KILOGRAM, QMINUTE
  14. PROPOFOL [Suspect]
     Active Substance: PROPOFOL
     Dosage: 75 MICROGRAM/KILOGRAM, QMINUTE
     Route: 042
  15. PROPOFOL [Suspect]
     Active Substance: PROPOFOL
     Dosage: 75 MICROGRAM/KILOGRAM, QMINUTE
     Route: 042
  16. PROPOFOL [Suspect]
     Active Substance: PROPOFOL
     Dosage: 75 MICROGRAM/KILOGRAM, QMINUTE

REACTIONS (1)
  - Drug ineffective [Unknown]
